FAERS Safety Report 23388513 (Version 1)
Quarter: 2024Q1

REPORT INFORMATION
  Report Type: Spontaneous
  Country: NL (occurrence: NL)
  Receive Date: 20240110
  Receipt Date: 20240110
  Transmission Date: 20240409
  Serious: Yes (Hospitalization, Other)
  Sender: FDA-Public Use
  Company Number: NL-Merck Healthcare KGaA-2023493507

PATIENT
  Age: 80 Year
  Sex: Male

DRUGS (4)
  1. METFORMIN [Suspect]
     Active Substance: METFORMIN HYDROCHLORIDE
     Indication: Product used for unknown indication
     Dosage: 1000 MILLIGRAM
     Route: 065
     Dates: start: 20230817
  2. PREDNISONE [Suspect]
     Active Substance: PREDNISONE
     Indication: Product used for unknown indication
     Dosage: UNK
     Route: 065
  3. TEPOTINIB [Suspect]
     Active Substance: TEPOTINIB
     Indication: Non-small cell lung cancer
     Dosage: 2 DOSAGE FORM (2 TABLETS, PATIENT RECEIVED ONE LAST COURSE OF THERAPY)
     Route: 048
     Dates: start: 20230817
  4. TEPOTINIB [Suspect]
     Active Substance: TEPOTINIB
     Dosage: 2 DOSAGE FORM (2 TABLETS, PATIENT RECEIVED ONE LAST COURSE OF THERAPY)
     Route: 048
     Dates: start: 20231109

REACTIONS (2)
  - Hyperglycaemia [Unknown]
  - Hepatotoxicity [Unknown]

NARRATIVE: CASE EVENT DATE: 20231207
